FAERS Safety Report 21451588 (Version 1)
Quarter: 2022Q4

REPORT INFORMATION
  Report Type: Spontaneous
  Country: US (occurrence: US)
  Receive Date: 20221013
  Receipt Date: 20221013
  Transmission Date: 20230113
  Serious: Yes (Other)
  Sender: FDA-Public Use
  Company Number: US-Fresenius Medical Care Renal Therapies Group-FMC-2209-001554

PATIENT
  Age: 59 Year
  Sex: Female
  Weight: 113 kg

DRUGS (2)
  1. DELFLEX WITH DEXTROSE 2.5% LOW MAGNESIUM LOW CALCIUM [Suspect]
     Active Substance: CALCIUM CHLORIDE\DEXTROSE\MAGNESIUM CHLORIDE\SODIUM CHLORIDE\SODIUM LACTATE
     Indication: End stage renal disease
     Dosage: 2200 ML FOR 6 CYCLES WITH A LAST FILL OF ICODEXTRIN AT 1500 ML AND NO DAYTIME EXCHANGE.
     Route: 033
  2. ICODEXTRIN [Suspect]
     Active Substance: ICODEXTRIN
     Indication: End stage renal disease

REACTIONS (2)
  - Peritonitis bacterial [Recovering/Resolving]
  - Fungal peritonitis [Recovering/Resolving]

NARRATIVE: CASE EVENT DATE: 20220831
